FAERS Safety Report 12294600 (Version 4)
Quarter: 2016Q2

REPORT INFORMATION
  Report Type: Report from Study
  Country: CA (occurrence: CA)
  Receive Date: 20160422
  Receipt Date: 20160622
  Transmission Date: 20160815
  Serious: Yes (Hospitalization, Other)
  Sender: FDA-Public Use
  Company Number: CA-ROCHE-1734429

PATIENT
  Age: 60 Year
  Sex: Female

DRUGS (11)
  1. AMITRIPTYLINE [Concomitant]
     Active Substance: AMITRIPTYLINE
  2. IMURAN [Concomitant]
     Active Substance: AZATHIOPRINE
  3. METHYLPREDNISOLONE. [Concomitant]
     Active Substance: METHYLPREDNISOLONE
     Route: 042
     Dates: start: 20160329
  4. NADOLOL. [Concomitant]
     Active Substance: NADOLOL
     Indication: MIGRAINE
  5. RISEDRONATE [Concomitant]
     Active Substance: RISEDRONATE SODIUM
  6. RITUXAN [Suspect]
     Active Substance: RITUXIMAB
     Indication: SJOGREN^S SYNDROME
  7. PREDNISONE. [Concomitant]
     Active Substance: PREDNISONE
  8. ATIVAN [Concomitant]
     Active Substance: LORAZEPAM
  9. DIPHENHYDRAMINE HCL [Concomitant]
     Active Substance: DIPHENHYDRAMINE HYDROCHLORIDE
     Route: 048
     Dates: start: 20160329
  10. ACETAMINOPHEN. [Concomitant]
     Active Substance: ACETAMINOPHEN
     Route: 048
     Dates: start: 20160329
  11. RITUXAN [Suspect]
     Active Substance: RITUXIMAB
     Indication: VASCULITIS
     Route: 042
     Dates: start: 20160329

REACTIONS (11)
  - Fungal infection [Not Recovered/Not Resolved]
  - Vaginal polyp [Unknown]
  - Blood pressure systolic increased [Unknown]
  - Ovarian cyst [Not Recovered/Not Resolved]
  - Headache [Recovered/Resolved]
  - Urethral pain [Unknown]
  - Migraine [Unknown]
  - Calculus bladder [Not Recovered/Not Resolved]
  - Muscular weakness [Not Recovered/Not Resolved]
  - Ill-defined disorder [Not Recovered/Not Resolved]
  - Balance disorder [Not Recovered/Not Resolved]

NARRATIVE: CASE EVENT DATE: 20160329
